FAERS Safety Report 7510484-8 (Version None)
Quarter: 2011Q2

REPORT INFORMATION
  Report Type: 
  Country: None (occurrence: None)
  Receive Date: 20110528
  Receipt Date: 20110519
  Transmission Date: 20111010
  Serious: Yes (Death, Life-Threatening, Hospitalization)
  Sender: FDA-Public Use
  Company Number: CH-GENZYME-CLOF-1001616

PATIENT
  Sex: Male
  Weight: 57 kg

DRUGS (7)
  1. EVOLTRA [Suspect]
     Indication: ACUTE MYELOID LEUKAEMIA
     Dosage: 10 MG/M2, (5X16.6 MG), INDUCTION CYCLE 2
     Route: 042
     Dates: start: 20110412, end: 20110416
  2. AMSACRINE [Suspect]
     Indication: ACUTE MYELOID LEUKAEMIA
     Dosage: UNK, 3 X 200 MG, INDUCTION CYCLE 2
     Route: 042
     Dates: start: 20110415, end: 20110419
  3. SOLU-MEDROL [Concomitant]
     Indication: PROPHYLAXIS OF NAUSEA AND VOMITING
     Dosage: 125 MG, UNK
     Route: 042
     Dates: start: 20110412, end: 20110419
  4. ACTRAPID [Concomitant]
     Indication: DIABETES MELLITUS
     Dosage: UNK, ON DEMAND PRN
     Route: 042
     Dates: start: 20110412, end: 20110426
  5. NEXIUM [Concomitant]
     Indication: PROPHYLAXIS
     Dosage: 40 MG, UNK
     Route: 048
     Dates: start: 20110412, end: 20110426
  6. CYTARABINE [Suspect]
     Indication: ACUTE MYELOID LEUKAEMIA
     Dosage: UNK, 12 X 1660 MG, INDUCTION CYCLE 2
     Route: 042
     Dates: start: 20110412, end: 20110417
  7. ALLOPURINOL [Concomitant]
     Indication: PROPHYLAXIS
     Dosage: 300 MG, UNK
     Route: 048
     Dates: start: 20110412, end: 20110418

REACTIONS (5)
  - TRAUMATIC LUNG INJURY [None]
  - BACTERAEMIA [None]
  - NEUTROPENIC COLITIS [None]
  - HYPERGLYCAEMIA [None]
  - PULMONARY HAEMORRHAGE [None]
